FAERS Safety Report 19372045 (Version 1)
Quarter: 2021Q2

REPORT INFORMATION
  Report Type: Report from Study
  Country: NZ (occurrence: NZ)
  Receive Date: 20210603
  Receipt Date: 20210603
  Transmission Date: 20210717
  Serious: Yes (Hospitalization)
  Sender: FDA-Public Use
  Company Number: NZ-ROCHE-2801006

PATIENT
  Age: 59 Year
  Sex: Male
  Weight: 94.9 kg

DRUGS (5)
  1. OBINUTUZUMAB. [Suspect]
     Active Substance: OBINUTUZUMAB
     Indication: FOLLICULAR LYMPHOMA
     Dosage: ON 23/MAR/2021, HE RECEIVED LAST DOSE OF OBINUTUZUMAB PRIOR TO SERIOUS ADVERSE EVENT.
     Route: 042
     Dates: start: 20201103
  2. ZANUBRUTINIB [Suspect]
     Active Substance: ZANUBRUTINIB
     Indication: FOLLICULAR LYMPHOMA
     Dosage: ON 29/MAR/2021, HE RECEIVED LAST DOSE OF ZANUBRUTINIB PRIOR TO FIRST EPISODE OF FEBRILE WITHOUT NEUT
     Route: 048
     Dates: start: 20210126
  3. MEROPENEM. [Concomitant]
     Active Substance: MEROPENEM
     Indication: SEPSIS
     Route: 042
     Dates: start: 20210329
  4. FLIXONASE [Concomitant]
     Active Substance: FLUTICASONE PROPIONATE
     Indication: CHRONIC SINUSITIS
     Dosage: 1 X 50 MCG SPRAY
     Dates: start: 20141013
  5. ENOXAPARIN [Concomitant]
     Active Substance: ENOXAPARIN
     Indication: THROMBOSIS PROPHYLAXIS
     Dates: start: 20210427, end: 20210427

REACTIONS (2)
  - Pyrexia [Recovered/Resolved]
  - Candida infection [Recovered/Resolved]

NARRATIVE: CASE EVENT DATE: 20210329
